FAERS Safety Report 7054697 (Version 5)
Quarter: 2015Q1

REPORT INFORMATION
  Report Type: Report from Study
  Country: CN (occurrence: CN)
  Receive Date: 20090720
  Receipt Date: 20150116
  Transmission Date: 20150721
  Serious: Yes (Death, Life-Threatening, Hospitalization)
  Sender: FDA-Public Use
  Company Number: CN-ROCHE-642954

PATIENT
  Age: 45 Year
  Sex: Male
  Weight: 75 kg

DRUGS (10)
  1. CAPECITABINE. [Suspect]
     Active Substance: CAPECITABINE
     Indication: GASTRIC CANCER
     Dosage: FREQUENCY-D1-14Q3W, UNIT: 1500 MG, THERAPY PERMANENTLY DISCONTINUED.
     Route: 048
     Dates: start: 20090706, end: 20090713
  2. CISPLATIN. [Suspect]
     Active Substance: CISPLATIN
     Indication: GASTRIC CANCER
     Dosage: FORM: INFUSION, UNIT: 118.2 MG, THERAPY PERMANENTLY DISCONTINUED.
     Route: 042
     Dates: start: 20090706, end: 20090713
  3. AZASETRON [Concomitant]
     Active Substance: AZASETRON
     Route: 065
     Dates: start: 20090708, end: 20090708
  4. PLACEBO [Suspect]
     Active Substance: UNSPECIFIED INGREDIENT
     Indication: GASTRIC CANCER
     Dosage: DOSE FORM: INFUSION, THERAPY PERMANENTLY DISCONTINUED.
     Route: 042
     Dates: start: 20090706, end: 20090713
  5. AMINO ACID [Concomitant]
     Dosage: DRUG: COMPOUND AMINO ACID (18AA-IV)
     Route: 065
     Dates: start: 20090702, end: 20090811
  6. OMEPRAZOLE. [Concomitant]
     Active Substance: OMEPRAZOLE
     Route: 065
  7. CEFOTIAM [Concomitant]
     Active Substance: CEFOTIAM
     Route: 065
     Dates: start: 20090708, end: 20090708
  8. GLUTATHIONE [Concomitant]
     Active Substance: GLUTATHIONE
     Route: 065
     Dates: start: 20090708, end: 20090708
  9. FAT EMULSION NOS [Concomitant]
     Active Substance: EGG PHOSPHOLIPIDS\SAFFLOWER OIL\SOYBEAN OIL
     Dosage: DRUG: FAT EMULSION (C14-24)
     Route: 065
     Dates: start: 20090712, end: 20090811
  10. PHOSPHATIDYLCHOLINE [Concomitant]
     Dosage: DRUG: POLYENE PHOSPHATIDYLCHOLINE.
     Route: 065
     Dates: start: 20090708, end: 20090708

REACTIONS (3)
  - Gastropleural fistula [Fatal]
  - Intestinal obstruction [Fatal]
  - Pneumothorax [Not Recovered/Not Resolved]

NARRATIVE: CASE EVENT DATE: 20090708
